FAERS Safety Report 24042689 (Version 1)
Quarter: 2024Q3

REPORT INFORMATION
  Report Type: Spontaneous
  Country: US (occurrence: US)
  Receive Date: 20240702
  Receipt Date: 20240702
  Transmission Date: 20241016
  Serious: No
  Sender: INTRA-CELLULAR THERAPIES
  Company Number: US-INTRA-CELLULAR THERAPIES, INC.-2024ICT00842

PATIENT
  Age: 51 Year
  Sex: Female
  Weight: 97.37 kg

DRUGS (17)
  1. CAPLYTA [Suspect]
     Active Substance: LUMATEPERONE
     Indication: Bipolar disorder
     Dosage: 42 MG, 1X/DAY AT BEDTIME
     Route: 048
     Dates: start: 202305, end: 20240521
  2. CAPLYTA [Suspect]
     Active Substance: LUMATEPERONE
     Indication: Mania
  3. CAPLYTA [Suspect]
     Active Substance: LUMATEPERONE
     Indication: Post-traumatic stress disorder
  4. CAPLYTA [Suspect]
     Active Substance: LUMATEPERONE
     Indication: Generalised anxiety disorder
  5. CAPLYTA [Suspect]
     Active Substance: LUMATEPERONE
     Indication: Anger
  6. CAPLYTA [Suspect]
     Active Substance: LUMATEPERONE
     Indication: Agitation
  7. LYRICA [Suspect]
     Active Substance: PREGABALIN
     Dosage: 50 MG
     Dates: end: 2024
  8. LYRICA [Suspect]
     Active Substance: PREGABALIN
     Dosage: 75 MG
     Dates: start: 2024, end: 20240514
  9. LYRICA [Suspect]
     Active Substance: PREGABALIN
     Dosage: LOWERED DOSE
     Dates: start: 2024
  10. ABILIFY MAINTENA [Concomitant]
     Active Substance: ARIPIPRAZOLE
     Dosage: 400 MG, 1X/MONTH
     Route: 030
  11. SERTRALINE [Concomitant]
     Active Substance: SERTRALINE HYDROCHLORIDE
     Dosage: 25 MG, 1X/DAY AT BEDTIME
  12. SERTRALINE [Concomitant]
     Active Substance: SERTRALINE HYDROCHLORIDE
     Dosage: 100 MG, 1X/DAY AT BEDTIME
  13. CETIRIZINE [Concomitant]
     Active Substance: CETIRIZINE HYDROCHLORIDE
     Dosage: UNK MG
  14. DICLOFENAC SODIUM [Concomitant]
     Active Substance: DICLOFENAC\DICLOFENAC SODIUM
     Dosage: UNK
  15. ESTRADIOL [Concomitant]
     Active Substance: ESTRADIOL
     Dosage: UNK
  16. MYRBETRIQ [Concomitant]
     Active Substance: MIRABEGRON
     Dosage: UNK
  17. OMEPRAZOLE [Concomitant]
     Active Substance: OMEPRAZOLE
     Dosage: UNK

REACTIONS (1)
  - Oedema peripheral [Not Recovered/Not Resolved]

NARRATIVE: CASE EVENT DATE: 20240201
